FAERS Safety Report 8193884-5 (Version None)
Quarter: 2012Q1

REPORT INFORMATION
  Report Type: 
  Country: None (occurrence: None)
  Receive Date: 20120308
  Receipt Date: 20120223
  Transmission Date: 20120608
  Serious: Yes (Hospitalization, Other)
  Sender: FDA-Public Use
  Company Number: IE-JNJFOC-20120213509

PATIENT
  Age: 83 Year
  Sex: Female

DRUGS (5)
  1. FLUCLOXACILLIN [Suspect]
     Indication: WOUND INFECTION
     Route: 042
  2. IRBESARTAN [Concomitant]
  3. ACETAMINOPHEN [Suspect]
     Indication: PRODUCT USED FOR UNKNOWN INDICATION
     Route: 065
  4. METFORMIN HCL [Concomitant]
  5. ACETAMINOPHEN [Suspect]
     Route: 065

REACTIONS (2)
  - METABOLIC ACIDOSIS [None]
  - ACIDOSIS [None]
